FAERS Safety Report 9907611 (Version 2)
Quarter: 2014Q1

REPORT INFORMATION
  Report Type: Spontaneous
  Country: US (occurrence: US)
  Receive Date: 20140219
  Receipt Date: 20140310
  Transmission Date: 20141002
  Serious: No
  Sender: FDA-Public Use
  Company Number: US-009507513-1402USA006887

PATIENT
  Age: 66 Year
  Sex: Male

DRUGS (1)
  1. REBETOL [Suspect]
     Dosage: UNK
     Route: 048
     Dates: start: 20140210

REACTIONS (2)
  - Wrong technique in drug usage process [Unknown]
  - Incorrect route of drug administration [Unknown]
